FAERS Safety Report 25009864 (Version 1)
Quarter: 2025Q1

REPORT INFORMATION
  Report Type: Spontaneous
  Country: US (occurrence: US)
  Receive Date: 20250225
  Receipt Date: 20250225
  Transmission Date: 20250409
  Serious: No
  Sender: MERCK SHARP & DOHME LLC
  Company Number: US-PFIZER INC-PV202500014143

PATIENT
  Age: 65 Year
  Sex: Female

DRUGS (2)
  1. TUCATINIB [Interacting]
     Active Substance: TUCATINIB
     Dosage: 2 TABLETS TWICE DAILY
  2. ATORVASTATIN [Interacting]
     Active Substance: ATORVASTATIN
     Route: 065

REACTIONS (1)
  - Drug interaction [Unknown]
